FAERS Safety Report 6195643-1 (Version None)
Quarter: 2009Q2

REPORT INFORMATION
  Report Type: 
  Country: None (occurrence: None)
  Receive Date: 20090519
  Receipt Date: 20090508
  Transmission Date: 20091009
  Serious: Yes (Other)
  Sender: FDA-Public Use
  Company Number: US-GENENTECH-282713

PATIENT
  Sex: Male
  Weight: 74.376 kg

DRUGS (1)
  1. RAPTIVA [Suspect]
     Indication: PSORIASIS
     Dosage: 125 MG, 1/WEEK
     Route: 058

REACTIONS (3)
  - CLUMSINESS [None]
  - DIPLOPIA [None]
  - MALAISE [None]
